FAERS Safety Report 6511462-8 (Version None)
Quarter: 2009Q4

REPORT INFORMATION
  Report Type: 
  Country: None (occurrence: None)
  Receive Date: 20091222
  Receipt Date: 20091210
  Transmission Date: 20100525
  Serious: Yes (Life-Threatening, Hospitalization)
  Sender: FDA-Public Use
  Company Number: FR-GENENTECH-268981

PATIENT
  Sex: Male
  Weight: 79 kg

DRUGS (13)
  1. RITUXIMAB [Suspect]
     Indication: DIFFUSE LARGE B-CELL LYMPHOMA
     Dosage: 785 MG, UNK
     Route: 042
     Dates: start: 20080723, end: 20080827
  2. RITUXIMAB [Suspect]
     Dosage: 735 MG, UNK
     Route: 042
     Dates: start: 20080910, end: 20081007
  3. CYCLOPHOSPHAMIDE [Suspect]
     Indication: NON-HODGKIN'S LYMPHOMA
     Dosage: 1570 MG, UNK
     Route: 042
     Dates: start: 20080623, end: 20080827
  4. CYCLOPHOSPHAMIDE [Suspect]
     Dosage: 1470 MG, UNK
     Route: 042
     Dates: start: 20080910, end: 20081007
  5. VINCRISTINE [Suspect]
     Indication: NON-HODGKIN'S LYMPHOMA
     Dosage: 2 MG, UNK
     Route: 042
     Dates: start: 20080723, end: 20080827
  6. VINCRISTINE [Suspect]
     Dosage: UNK
     Route: 042
     Dates: start: 20080910, end: 20081007
  7. DOXORUBICIN HCL [Suspect]
     Indication: NON-HODGKIN'S LYMPHOMA
     Dosage: 105 MG, UNK
     Route: 042
     Dates: start: 20080723, end: 20080827
  8. DOXORUBICIN HCL [Suspect]
     Dosage: 98 MG, UNK
     Route: 042
     Dates: start: 20080910, end: 20081007
  9. PREDNISONE [Suspect]
     Indication: NON-HODGKIN'S LYMPHOMA
     Dosage: 85 MG, UNK
     Route: 048
     Dates: start: 20080724, end: 20080827
  10. PREDNISONE [Suspect]
     Dosage: 80 MG, UNK
     Route: 048
     Dates: start: 20080911, end: 20081007
  11. PREDNISONE [Suspect]
     Dosage: UNK
     Route: 048
     Dates: start: 20081007
  12. METHOTREXATE [Suspect]
     Indication: NON-HODGKIN'S LYMPHOMA
     Dosage: 15 MG, UNK
     Route: 042
     Dates: start: 20080724, end: 20080827
  13. METHOTREXATE [Suspect]
     Dosage: 15 MG, UNK
     Route: 042
     Dates: start: 20080910, end: 20081007

REACTIONS (2)
  - FEBRILE BONE MARROW APLASIA [None]
  - MUCOSAL INFLAMMATION [None]
